FAERS Safety Report 14759671 (Version 2)
Quarter: 2019Q1

REPORT INFORMATION
  Report Type: Spontaneous
  Country: US (occurrence: US)
  Receive Date: 20180413
  Receipt Date: 20190308
  Transmission Date: 20190417
  Serious: Yes (Other)
  Sender: FDA-Public Use
  Company Number: US-ASTRAZENECA-2018SE44571

PATIENT
  Age: 58 Year
  Sex: Female

DRUGS (21)
  1. ENALAPRIL [Concomitant]
     Active Substance: ENALAPRIL
  2. MECLIZINE [Concomitant]
     Active Substance: MECLIZINE HYDROCHLORIDE
  3. SPIRONOLACTONE. [Concomitant]
     Active Substance: SPIRONOLACTONE
  4. TRAZODONE [Concomitant]
     Active Substance: TRAZODONE HYDROCHLORIDE
  5. ONGLYZA [Suspect]
     Active Substance: SAXAGLIPTIN HYDROCHLORIDE
     Route: 048
     Dates: start: 2016, end: 2018
  6. METOPROLOL. [Concomitant]
     Active Substance: METOPROLOL
  7. FUROSEMIDE. [Concomitant]
     Active Substance: FUROSEMIDE
  8. VALSARTAN. [Concomitant]
     Active Substance: VALSARTAN
  9. HYDRALAZINE [Concomitant]
     Active Substance: HYDRALAZINE HYDROCHLORIDE
  10. MONTELUKAST [Concomitant]
     Active Substance: MONTELUKAST SODIUM
  11. METFORMIN [Concomitant]
     Active Substance: METFORMIN HYDROCHLORIDE
  12. PREDNISONE. [Concomitant]
     Active Substance: PREDNISONE
  13. NIFEDIPINE. [Concomitant]
     Active Substance: NIFEDIPINE
  14. SYMBICORT [Concomitant]
     Active Substance: BUDESONIDE\FORMOTEROL FUMARATE DIHYDRATE
  15. GLIPIZIDE. [Concomitant]
     Active Substance: GLIPIZIDE
  16. LOTRISONE [Concomitant]
     Active Substance: BETAMETHASONE DIPROPIONATE\CLOTRIMAZOLE
  17. RANEXA [Concomitant]
     Active Substance: RANOLAZINE
  18. ATORVASTATIN [Concomitant]
     Active Substance: ATORVASTATIN
  19. BUSPIRONE [Concomitant]
     Active Substance: BUSPIRONE HYDROCHLORIDE
  20. KOMBIGLYZE XR [Suspect]
     Active Substance: METFORMIN HYDROCHLORIDE\SAXAGLIPTIN HYDROCHLORIDE
     Route: 048
     Dates: start: 2016, end: 2018
  21. MOXIFLOXACIN. [Concomitant]
     Active Substance: MOXIFLOXACIN

REACTIONS (5)
  - Cardiac failure congestive [Unknown]
  - Cardiovascular disorder [Unknown]
  - Myocardial infarction [Unknown]
  - Hypertensive heart disease [Unknown]
  - Cardiac failure [Unknown]

NARRATIVE: CASE EVENT DATE: 2010
